FAERS Safety Report 19351396 (Version 2)
Quarter: 2021Q3

REPORT INFORMATION
  Report Type: Report from Study
  Country: US (occurrence: US)
  Receive Date: 20210531
  Receipt Date: 20210713
  Transmission Date: 20211014
  Serious: Yes (Death, Other)
  Sender: FDA-Public Use
  Company Number: US-ACADIA PHARMACEUTICALS INC.-ACA-2021-PIM-001916

PATIENT
  Sex: Male

DRUGS (8)
  1. METOPROLOL TARTRATE. [Concomitant]
     Active Substance: METOPROLOL TARTRATE
  2. TRAZODONE [Concomitant]
     Active Substance: TRAZODONE HYDROCHLORIDE
  3. ATORVASTATIN [Concomitant]
     Active Substance: ATORVASTATIN
  4. RIVASTIGMINE. [Concomitant]
     Active Substance: RIVASTIGMINE
  5. WARFARIN [Concomitant]
     Active Substance: WARFARIN
  6. NITROGLYCERIN. [Concomitant]
     Active Substance: NITROGLYCERIN
  7. PANTOPRAZOLE [Concomitant]
     Active Substance: PANTOPRAZOLE
  8. NUPLAZID [Suspect]
     Active Substance: PIMAVANSERIN TARTRATE
     Indication: PARKINSON^S DISEASE
     Dosage: 34 MILLIGRAM, QD
     Route: 048
     Dates: start: 20190503

REACTIONS (5)
  - Coronary artery disease [Recovered/Resolved]
  - Sleep apnoea syndrome [Recovered/Resolved]
  - Dementia with Lewy bodies [Recovered/Resolved]
  - Hyperlipidaemia [Recovered/Resolved]
  - Cardiac failure congestive [Recovered/Resolved]
